FAERS Safety Report 8534524-2 (Version None)
Quarter: 2012Q3

REPORT INFORMATION
  Report Type: 
  Country: None (occurrence: None)
  Receive Date: 20120724
  Receipt Date: 20120711
  Transmission Date: 20120928
  Serious: Yes (Death, Life-Threatening, Hospitalization, Other)
  Sender: FDA-Public Use
  Company Number: CO-BAYER-2012-071226

PATIENT
  Age: 76 Year
  Sex: Male
  Weight: 64 kg

DRUGS (29)
  1. LACTULOSA [Concomitant]
     Indication: PROPHYLAXIS
     Dosage: DAILY DOSE 30 G
     Route: 048
     Dates: start: 20090501, end: 20100810
  2. FUROSEMIDE [Concomitant]
     Indication: PROPHYLAXIS
     Dosage: TOTAL DAILY DOSE 40 MG
     Route: 048
     Dates: start: 20090101, end: 20101226
  3. ENOXAPARIN [Concomitant]
     Dosage: DAILY DOSE 40 MG
     Dates: start: 20110112, end: 20110117
  4. INSULIN [Concomitant]
     Dosage: DAILY DOSE 10 U
     Dates: start: 20100113, end: 20110113
  5. SPIRONOLACTONE [Concomitant]
     Indication: PROPHYLAXIS
     Dosage: DAILY DOSE 100 MG
     Route: 048
     Dates: start: 20090501, end: 20090501
  6. ONDANSETRON HCL [Concomitant]
     Dosage: DAILY DOSE 8 MG
     Dates: start: 20100125, end: 20100125
  7. MIDAZOLAM [Concomitant]
     Dosage: DAILY DOSE 5 MG
     Dates: start: 20101228, end: 20101228
  8. DEXTROSE 5% [Concomitant]
     Dosage: 40 ML, Q1HR
     Route: 042
     Dates: start: 20110112, end: 20110117
  9. LACTULOSA [Concomitant]
     Dosage: DAILY DOSE 30 G
     Dates: start: 20100906, end: 20101227
  10. PROPRANOLOL [Concomitant]
     Indication: PRODUCT USED FOR UNKNOWN INDICATION
     Dosage: DAILY DOSE 80 MG
     Route: 048
     Dates: start: 20090501, end: 20090501
  11. MIDAZOLAM [Concomitant]
     Dosage: TOTAL DAILY DOSE 2 MG
     Dates: start: 20100125, end: 20100125
  12. NEXAVAR [Suspect]
     Dosage: 400 MG, BID
     Dates: start: 20100130, end: 20101225
  13. FUROSEMIDE [Concomitant]
     Dosage: DAILY DOSE 80 MG
     Route: 042
     Dates: start: 20110112, end: 20110117
  14. DEXTROSE 5% [Concomitant]
     Dosage: 30 ML, Q1HR
     Route: 042
     Dates: start: 20101226, end: 20101228
  15. INSULIN [Concomitant]
     Indication: DIABETES MELLITUS MANAGEMENT
     Dosage: DAILY DOSE 10 U
     Route: 042
     Dates: start: 20101226, end: 20101226
  16. HALDOL [Concomitant]
     Dosage: DAILY DOSE 5 MG
     Dates: start: 20101228, end: 20101228
  17. OMEPRAZOLE [Concomitant]
     Dosage: DAILY DOSE 20 MG
     Dates: start: 20110112, end: 20110117
  18. SPIRONOLACTONE [Concomitant]
     Indication: LIVER DISORDER
     Dosage: DAILY DOSE 100 MG
     Dates: start: 20110104, end: 20110111
  19. LACTULOSA [Concomitant]
     Dosage: DAILY DOSE 20 G
     Dates: start: 20110104, end: 20110111
  20. HALDOL [Concomitant]
     Dosage: DAILY DOSE 10 MG
     Dates: start: 20110116, end: 20110117
  21. SALINE SOLUTIONS [Concomitant]
     Indication: FLUID REPLACEMENT
     Dosage: 50 ML, Q1HR
     Route: 042
     Dates: start: 20110112, end: 20110117
  22. NPH INSULIN [Concomitant]
     Indication: DIABETES MELLITUS
     Dosage: DAILY DOSE 39 U
     Route: 058
     Dates: start: 20090501, end: 20101226
  23. NEXAVAR [Suspect]
     Indication: HEPATIC NEOPLASM MALIGNANT
     Dosage: 400 MG, BID
     Route: 048
     Dates: start: 20091216, end: 20100127
  24. NEXAVAR [Suspect]
     Dosage: DAILY DOSE 800 MG
     Dates: start: 20110104, end: 20110111
  25. FUROSEMIDE [Concomitant]
     Indication: LIVER DISORDER
     Dosage: TOTAL DAILY DOSE 60 MG
     Dates: start: 20101226, end: 20101228
  26. AMPICILLIN AND SULBACTAM [Concomitant]
     Dosage: TOTAL DAILY DOSE 3 G
     Dates: start: 20100125, end: 20100125
  27. HEPARIN [Concomitant]
     Dosage: TOTAL DAILY DOSE 50000 U
     Dates: start: 20100125, end: 20100125
  28. ACETYLSALICYLIC ACID SRT [Concomitant]
     Dosage: DAILY DOSE 100 MG
     Dates: start: 20101226, end: 20101227
  29. DIPHENHYDRAMINE HCL [Concomitant]
     Indication: SEDATION
     Dosage: DAILY DOSE 50 MG
     Route: 048
     Dates: start: 20101231, end: 20110102

REACTIONS (9)
  - DIARRHOEA [None]
  - RENAL FAILURE CHRONIC [None]
  - OEDEMA PERIPHERAL [None]
  - EPISTAXIS [None]
  - IMPETIGO [None]
  - LIVIDITY [None]
  - HYPERKALAEMIA [None]
  - HEPATIC FAILURE [None]
  - HEPATIC ENCEPHALOPATHY [None]
